FAERS Safety Report 5636989-2 (Version None)
Quarter: 2008Q1

REPORT INFORMATION
  Report Type: 
  Country: None (occurrence: None)
  Receive Date: 20080225
  Receipt Date: 20070330
  Transmission Date: 20080703
  Serious: No
  Sender: FDA-Public Use
  Company Number: US-BRISTOL-MYERS SQUIBB COMPANY-13733233

PATIENT
  Age: 53 Year
  Sex: Female
  Weight: 175 kg

DRUGS (1)
  1. GLUCOPHAGE [Suspect]
     Dosage: DOSE WAS INCREASED TO 500MG TWICE A DAY
     Dates: start: 20070313

REACTIONS (9)
  - BLOOD GLUCOSE FLUCTUATION [None]
  - BODY TEMPERATURE INCREASED [None]
  - FATIGUE [None]
  - FLUSHING [None]
  - MUSCLE TIGHTNESS [None]
  - MYALGIA [None]
  - NAUSEA [None]
  - URINE ABNORMALITY [None]
  - VOMITING [None]
